FAERS Safety Report 10690650 (Version 1)
Quarter: 2015Q1

REPORT INFORMATION
  Report Type: Report from Study
  Country: US (occurrence: US)
  Receive Date: 20150105
  Receipt Date: 20150105
  Transmission Date: 20150720
  Serious: Yes (Other)
  Sender: FDA-Public Use
  Company Number: US-GILEAD-2014-0129012

PATIENT
  Age: 78 Year
  Sex: Male

DRUGS (1)
  1. IDELALISIB [Suspect]
     Active Substance: IDELALISIB
     Indication: B-CELL LYMPHOMA STAGE III
     Dosage: 150 MG, UNK
     Route: 048
     Dates: start: 20141009

REACTIONS (1)
  - Disease progression [Unknown]
